FAERS Safety Report 14015288 (Version 1)
Quarter: 2017Q3

REPORT INFORMATION
  Report Type: Spontaneous
  Country: US (occurrence: US)
  Receive Date: 20170927
  Receipt Date: 20170927
  Transmission Date: 20171128
  Serious: Yes (Other)
  Sender: FDA-Public Use
  Company Number: US-PFIZER INC-2017412276

PATIENT
  Age: 56 Year
  Sex: Female
  Weight: 73 kg

DRUGS (2)
  1. PRISTIQ EXTENDED-RELEASE [Suspect]
     Active Substance: DESVENLAFAXINE SUCCINATE
     Dosage: 100 MG, 1X/DAY
     Dates: end: 201706
  2. PRISTIQ EXTENDED-RELEASE [Suspect]
     Active Substance: DESVENLAFAXINE SUCCINATE
     Indication: MENOPAUSE
     Dosage: 50 MG, UNK
     Dates: start: 2010

REACTIONS (9)
  - Drug dose omission [Unknown]
  - Agitation [Unknown]
  - Suicidal ideation [Unknown]
  - Abnormal behaviour [Unknown]
  - Irritability [Unknown]
  - Crying [Unknown]
  - Asthenia [Unknown]
  - Heart rate increased [Recovered/Resolved]
  - Weight increased [Not Recovered/Not Resolved]
